FAERS Safety Report 7685841-X (Version None)
Quarter: 2011Q3

REPORT INFORMATION
  Report Type: 
  Country: None (occurrence: None)
  Receive Date: 20110815
  Receipt Date: 20110815
  Transmission Date: 20111222
  Serious: No
  Sender: FDA-Public Use
  Company Number: None

PATIENT
  Sex: Male
  Weight: 79.8331 kg

DRUGS (1)
  1. ANDROGEL [Suspect]
     Indication: BLOOD TESTOSTERONE DECREASED
     Dosage: 2.5 GRAMS ONCE A DAY ON SKIN
     Route: 061
     Dates: start: 20110722, end: 20110725

REACTIONS (1)
  - TESTICULAR ATROPHY [None]
